FAERS Safety Report 20853713 (Version 1)
Quarter: 2022Q2

REPORT INFORMATION
  Report Type: Spontaneous
  Country: US (occurrence: None)
  Receive Date: 20220519
  Receipt Date: 20220519
  Transmission Date: 20220721
  Serious: No
  Sender: FDA-Public Use
  Company Number: None

PATIENT
  Age: 77 Year
  Sex: Female
  Weight: 67.13 kg

DRUGS (13)
  1. CAPECITABINE [Suspect]
     Active Substance: CAPECITABINE
     Indication: Breast cancer female
     Dosage: FREQUENCY : TWICE A DAY;?
     Route: 048
  2. ALPRAZOLAM [Concomitant]
     Active Substance: ALPRAZOLAM
  3. ATORVASTATIN [Concomitant]
  4. BUPROPION HCI BUS PIRONE [Concomitant]
  5. CYANOCOBALAMIN FENTANYL T [Concomitant]
  6. FLUTICASONE PROPIONATE [Concomitant]
  7. LEVOTHYROXINE SODIUM [Concomitant]
  8. MULTIVITAMIN NAPROXEN [Concomitant]
  9. OXYCONTIN [Concomitant]
  10. PERIDEX MOUTH/THROAT [Concomitant]
  11. PROPRANOLOL HCI [Concomitant]
  12. TRAZODONE [Concomitant]
     Active Substance: TRAZODONE HYDROCHLORIDE
  13. VENLAFAXINE [Concomitant]

REACTIONS (5)
  - Dysarthria [None]
  - Asthenia [None]
  - Peripheral swelling [None]
  - Fall [None]
  - Therapy interrupted [None]
